FAERS Safety Report 25817137 (Version 1)
Quarter: 2025Q3

REPORT INFORMATION
  Report Type: Spontaneous
  Country: US (occurrence: None)
  Receive Date: 20250917
  Receipt Date: 20250917
  Transmission Date: 20251021
  Serious: Yes (Death)
  Sender: FDA-CTU
  Company Number: None

PATIENT
  Age: 84 Year
  Sex: Male

DRUGS (1)
  1. PIRFENIDONE [Suspect]
     Active Substance: PIRFENIDONE
     Indication: Idiopathic pulmonary fibrosis
     Dosage: FREQUENCY : 3 TIMES A DAY;?
     Route: 048
     Dates: start: 20250529, end: 20250830

REACTIONS (10)
  - Cerebrovascular accident [None]
  - Respiratory failure [None]
  - Pneumonia [None]
  - Acute kidney injury [None]
  - Chronic kidney disease [None]
  - Dysphagia [None]
  - Agonal respiration [None]
  - Depressed level of consciousness [None]
  - Oxygen saturation decreased [None]
  - Agitation [None]

NARRATIVE: CASE EVENT DATE: 20250830
